FAERS Safety Report 4806010-4 (Version None)
Quarter: 2005Q4

REPORT INFORMATION
  Report Type: 
  Country: None (occurrence: None)
  Receive Date: 20051021
  Receipt Date: 20051011
  Transmission Date: 20060501
  Serious: Yes (Disabling, Other)
  Sender: FDA-Public Use
  Company Number: 419859

PATIENT
  Age: 63 Year
  Sex: Female

DRUGS (1)
  1. DILATREND [Suspect]
     Dosage: 25MG TWICE PER DAY
     Route: 048
     Dates: start: 20030309, end: 20050729

REACTIONS (7)
  - ANAEMIA [None]
  - BLOOD CREATININE INCREASED [None]
  - HAEMOGLOBIN DECREASED [None]
  - LABORATORY TEST ABNORMAL [None]
  - NEUTROPENIA [None]
  - PROTEIN TOTAL INCREASED [None]
  - RED BLOOD CELL SEDIMENTATION RATE INCREASED [None]
